FAERS Safety Report 10289844 (Version 4)
Quarter: 2015Q2

REPORT INFORMATION
  Report Type: Spontaneous
  Country: US (occurrence: US)
  Receive Date: 20140710
  Receipt Date: 20150525
  Transmission Date: 20150821
  Serious: Yes (Other)
  Sender: FDA-Public Use
  Company Number: US-JNJFOC-20140701273

PATIENT

DRUGS (5)
  1. CARBAMAZEPINE. [Interacting]
     Active Substance: CARBAMAZEPINE
     Indication: SEIZURE
     Route: 065
  2. TOPIRAMATE. [Suspect]
     Active Substance: TOPIRAMATE
     Indication: SEIZURE
     Route: 065
  3. VALPROIC ACID. [Interacting]
     Active Substance: VALPROIC ACID
     Indication: SEIZURE
     Route: 065
  4. RETIGABINE [Interacting]
     Active Substance: EZOGABINE
     Indication: SEIZURE
     Route: 065
  5. PHENYTOIN. [Interacting]
     Active Substance: PHENYTOIN
     Indication: SEIZURE
     Route: 065

REACTIONS (17)
  - Visual impairment [Unknown]
  - Asthenia [Unknown]
  - Dyspepsia [Unknown]
  - Nausea [Unknown]
  - Tremor [Unknown]
  - Liver function test abnormal [Unknown]
  - Adverse event [Unknown]
  - Amnesia [Unknown]
  - Confusional state [Unknown]
  - Drug interaction [Unknown]
  - Rash [Unknown]
  - Dizziness [Unknown]
  - Somnolence [Unknown]
  - Coordination abnormal [Unknown]
  - Headache [Unknown]
  - Drug ineffective [Unknown]
  - Speech disorder [Unknown]
